FAERS Safety Report 5069203-X (Version None)
Quarter: 2006Q3

REPORT INFORMATION
  Report Type: 
  Country: None (occurrence: None)
  Receive Date: 20060803
  Receipt Date: 20060714
  Transmission Date: 20061208
  Serious: Yes (Hospitalization)
  Sender: FDA-Public Use
  Company Number: DE-JNJFOC-20040604124

PATIENT
  Sex: Female
  Weight: 56.2 kg

DRUGS (6)
  1. REMICADE [Suspect]
     Indication: CROHN'S DISEASE
     Dosage: NO DRUG ADMINISTERED
     Route: 042
  2. ZYTRIM [Concomitant]
  3. PENTASA [Concomitant]
  4. DECORTIN [Concomitant]
  5. CIPROBAY [Concomitant]
     Indication: CROHN'S DISEASE
  6. PANTOPRAZOLE SODIUM [Concomitant]

REACTIONS (4)
  - ABDOMINAL PAIN [None]
  - APPENDICITIS [None]
  - CROHN'S DISEASE [None]
  - PERITONITIS [None]
